FAERS Safety Report 13264312 (Version 1)
Quarter: 2017Q1

REPORT INFORMATION
  Report Type: Report from Study
  Country: IT (occurrence: IT)
  Receive Date: 20170223
  Receipt Date: 20170223
  Transmission Date: 20170428
  Serious: Yes (Other)
  Sender: FDA-Public Use
  Company Number: IT-TAKEDA-2017MPI001547

PATIENT

DRUGS (8)
  1. DOXORUBICIN [Suspect]
     Active Substance: DOXORUBICIN
     Indication: ACUTE LYMPHOCYTIC LEUKAEMIA RECURRENT
     Dosage: 60 MG/M2, UNK
     Route: 042
  2. VINCRISTINE [Suspect]
     Active Substance: VINCRISTINE
     Indication: ACUTE LYMPHOCYTIC LEUKAEMIA RECURRENT
     Dosage: 1.5 MG/M2, UNK
     Route: 042
  3. VELCADE [Suspect]
     Active Substance: BORTEZOMIB
     Indication: ACUTE LYMPHOCYTIC LEUKAEMIA RECURRENT
     Dosage: 1.3 MG/M2, UNK
     Route: 042
  4. DEXAMETHASONE. [Suspect]
     Active Substance: DEXAMETHASONE
     Indication: ACUTE LYMPHOCYTIC LEUKAEMIA RECURRENT
     Dosage: 10 MG/M2, QD
     Route: 042
  5. PEG/L-ASPARAGINASE [Suspect]
     Active Substance: PEGASPARGASE
     Indication: ACUTE LYMPHOCYTIC LEUKAEMIA RECURRENT
     Dosage: UNK, 1/WEEK
     Route: 042
  6. METHYLPREDNISOLONE. [Concomitant]
     Active Substance: METHYLPREDNISOLONE
     Dosage: UNK
     Route: 065
  7. METHOTREXATE. [Concomitant]
     Active Substance: METHOTREXATE
     Dosage: UNK
     Route: 037
  8. CYTARABINE. [Concomitant]
     Active Substance: CYTARABINE
     Dosage: UNK
     Route: 065

REACTIONS (24)
  - Peripheral sensory neuropathy [Recovered/Resolved]
  - Coagulopathy [Unknown]
  - Alanine aminotransferase abnormal [Unknown]
  - Nausea [Unknown]
  - Bone marrow failure [Unknown]
  - Blood fibrinogen decreased [Unknown]
  - Hyponatraemia [Unknown]
  - Sepsis [Recovered/Resolved]
  - Vomiting [Unknown]
  - Headache [Recovered/Resolved]
  - Blood bilirubin abnormal [Unknown]
  - Dysarthria [Recovered/Resolved]
  - Amylase abnormal [Unknown]
  - Lipase abnormal [Unknown]
  - Aspartate aminotransferase abnormal [Unknown]
  - Peripheral motor neuropathy [Recovered/Resolved]
  - Diarrhoea [Unknown]
  - Gamma-glutamyltransferase abnormal [Unknown]
  - Neutrophil count decreased [Unknown]
  - Platelet count decreased [Unknown]
  - Hypokalaemia [Unknown]
  - Hypocalcaemia [Unknown]
  - Ataxia [Recovered/Resolved]
  - Disorientation [Recovered/Resolved]
